FAERS Safety Report 7565884-7 (Version None)
Quarter: 2011Q2

REPORT INFORMATION
  Report Type: 
  Country: None (occurrence: None)
  Receive Date: 20110623
  Receipt Date: 20110617
  Transmission Date: 20111010
  Serious: Yes (Hospitalization, Other)
  Sender: FDA-Public Use
  Company Number: US-PFIZER INC-2010005505

PATIENT
  Sex: Male

DRUGS (1)
  1. CHANTIX [Suspect]
     Dosage: STARTER PACK
     Route: 048
     Dates: start: 20080501

REACTIONS (5)
  - INSOMNIA [None]
  - PHOBIA [None]
  - SUICIDE ATTEMPT [None]
  - ANXIETY [None]
  - AMNESIA [None]
